FAERS Safety Report 5346867-4 (Version None)
Quarter: 2007Q2

REPORT INFORMATION
  Report Type: 
  Country: None (occurrence: None)
  Receive Date: 20070605
  Receipt Date: 20070531
  Transmission Date: 20071010
  Serious: Yes (Life-Threatening)
  Sender: FDA-Public Use
  Company Number: PH-PFIZER INC-2007045117

PATIENT
  Sex: Male
  Weight: 75 kg

DRUGS (1)
  1. NEURONTIN [Suspect]
     Indication: POST HERPETIC NEURALGIA
     Route: 048
     Dates: start: 20070410, end: 20070410

REACTIONS (4)
  - DYSARTHRIA [None]
  - FATIGUE [None]
  - SOMNOLENCE [None]
  - TRISMUS [None]
